FAERS Safety Report 4994768-3 (Version None)
Quarter: 2006Q1

REPORT INFORMATION
  Report Type: 
  Country: None (occurrence: None)
  Receive Date: 20060313
  Receipt Date: 20050712
  Transmission Date: 20060701
  Serious: Yes (Hospitalization)
  Sender: FDA-Public Use
  Company Number: PHEH2005US07747

PATIENT
  Age: 45 Year
  Sex: Female

DRUGS (4)
  1. TRILEPTAL [Suspect]
     Indication: AFFECTIVE DISORDER
     Dosage: 600 MG,TID,ORAL
     Route: 048
  2. ZYPREXA [Concomitant]
  3. PHENYTOIN [Concomitant]
  4. MACRODANTIN [Concomitant]

REACTIONS (1)
  - ERYTHEMA MULTIFORME [None]
